FAERS Safety Report 17068648 (Version 1)
Quarter: 2019Q4

REPORT INFORMATION
  Report Type: Spontaneous
  Country: US (occurrence: US)
  Receive Date: 20191123
  Receipt Date: 20191123
  Transmission Date: 20200122
  Serious: No
  Sender: FDA-Public Use
  Company Number: US-JNJFOC-20191112019

PATIENT
  Age: 71 Year
  Sex: Female
  Weight: 65.83 kg

DRUGS (3)
  1. SUDAFED [Suspect]
     Active Substance: PSEUDOEPHEDRINE HYDROCHLORIDE
     Indication: RHINORRHOEA
     Dosage: 1 TABLET 4 TIMES A DAY
     Route: 048
     Dates: start: 20190801
  2. SUDAFED [Suspect]
     Active Substance: PSEUDOEPHEDRINE HYDROCHLORIDE
     Dosage: PRODUCT LAST ADMINISTRATION: 07-NOV-2019
     Route: 048
     Dates: start: 201911
  3. PRILOSEC [Concomitant]
     Active Substance: OMEPRAZOLE MAGNESIUM
     Indication: HYPERCHLORHYDRIA
     Route: 065

REACTIONS (3)
  - Sinus disorder [Not Recovered/Not Resolved]
  - Extra dose administered [Unknown]
  - Overdose [Unknown]

NARRATIVE: CASE EVENT DATE: 20190801
